FAERS Safety Report 4828191-9 (Version None)
Quarter: 2005Q4

REPORT INFORMATION
  Report Type: 
  Country: None (occurrence: None)
  Receive Date: 20051115
  Receipt Date: 20050706
  Transmission Date: 20060501
  Serious: Yes (Other)
  Sender: FDA-Public Use
  Company Number: SE-GLAXOSMITHKLINE-B0387436A

PATIENT
  Sex: Female

DRUGS (6)
  1. ZOFRAN [Suspect]
     Indication: PREMEDICATION
     Route: 042
  2. MORPHINE [Concomitant]
     Route: 030
  3. ATROPINE [Concomitant]
  4. SELOKEEN [Concomitant]
  5. NORVASC [Concomitant]
  6. ZOPICLONE [Concomitant]

REACTIONS (8)
  - BLOOD PRESSURE SYSTOLIC INCREASED [None]
  - DYSARTHRIA [None]
  - DYSPNOEA [None]
  - GENERAL PHYSICAL HEALTH DETERIORATION [None]
  - HYPERTENSION [None]
  - MOVEMENT DISORDER [None]
  - MUSCLE TWITCHING [None]
  - PHARMACEUTICAL PRODUCT COMPLAINT [None]
